FAERS Safety Report 18707078 (Version 2)
Quarter: 2021Q1

REPORT INFORMATION
  Report Type: Spontaneous
  Country: US (occurrence: US)
  Receive Date: 20210106
  Receipt Date: 20210108
  Transmission Date: 20210419
  Serious: Yes (Other)
  Sender: FDA-Public Use
  Company Number: US-AMGEN-USASP2020212726

PATIENT
  Age: 33 Year
  Sex: Female

DRUGS (1)
  1. CINACALCET HCL [Suspect]
     Active Substance: CINACALCET HYDROCHLORIDE
     Indication: HYPERPARATHYROIDISM
     Dosage: 120 MILLIGRAM, QD
     Route: 065

REACTIONS (10)
  - Spinal cord oedema [Unknown]
  - Parathyroid hyperplasia [Unknown]
  - Osteopenia [Unknown]
  - Brown tumour [Unknown]
  - Hypercalcaemia [Unknown]
  - Spinal cord compression [Unknown]
  - Spinal stenosis [Unknown]
  - Blood alkaline phosphatase increased [Unknown]
  - Cardiomegaly [Unknown]
  - Therapeutic product effect incomplete [Unknown]
